FAERS Safety Report 25440439 (Version 1)
Quarter: 2025Q2

REPORT INFORMATION
  Report Type: Spontaneous
  Country: US (occurrence: None)
  Receive Date: 20250616
  Receipt Date: 20250616
  Transmission Date: 20250716
  Serious: Yes (Other)
  Sender: FDA-CTU
  Company Number: None

PATIENT
  Age: 69 Year
  Sex: Female
  Weight: 56.25 kg

DRUGS (8)
  1. ALENDRONATE SODIUM [Suspect]
     Active Substance: ALENDRONATE SODIUM
     Indication: Osteoporosis
     Route: 048
  2. LISINOPRIL [Concomitant]
     Active Substance: LISINOPRIL
  3. CLARITIN [Concomitant]
     Active Substance: LORATADINE
  4. ALLEGRA [Concomitant]
     Active Substance: FEXOFENADINE HYDROCHLORIDE
  5. bit d3 [Concomitant]
  6. CALCIUM [Concomitant]
     Active Substance: CALCIUM
  7. FLAXSEED [Concomitant]
     Active Substance: FLAX SEED
  8. HERBALS\TURMERIC [Concomitant]
     Active Substance: HERBALS\TURMERIC

REACTIONS (6)
  - Gastrointestinal disorder [None]
  - Fluid retention [None]
  - Sunburn [None]
  - Rash [None]
  - Pruritus [None]
  - Photosensitivity reaction [None]

NARRATIVE: CASE EVENT DATE: 20250514
